FAERS Safety Report 7809076-2 (Version None)
Quarter: 2011Q4

REPORT INFORMATION
  Report Type: 
  Country: None (occurrence: None)
  Receive Date: 20111012
  Receipt Date: 20110929
  Transmission Date: 20120403
  Serious: Yes (Other)
  Sender: FDA-Public Use
  Company Number: JP-JNJFOC-20110703170

PATIENT
  Sex: Male

DRUGS (3)
  1. ZYRTEC [Suspect]
     Route: 048
  2. MUCOSOLVAN [Concomitant]
     Indication: PRODUCT USED FOR UNKNOWN INDICATION
     Route: 065
  3. ZYRTEC [Suspect]
     Indication: COUGH
     Route: 048
     Dates: start: 20110627, end: 20110627

REACTIONS (2)
  - DRUG PRESCRIBING ERROR [None]
  - ACCIDENTAL OVERDOSE [None]
